FAERS Safety Report 19878551 (Version 2)
Quarter: 2021Q4

REPORT INFORMATION
  Report Type: Spontaneous
  Country: US (occurrence: US)
  Receive Date: 20210924
  Receipt Date: 20211110
  Transmission Date: 20220304
  Serious: Yes (Other)
  Sender: FDA-Public Use
  Company Number: US-JNJFOC-20210941540

PATIENT
  Age: 52 Year
  Sex: Female

DRUGS (3)
  1. ELMIRON [Suspect]
     Active Substance: PENTOSAN POLYSULFATE SODIUM
     Indication: Cystitis interstitial
     Route: 048
     Dates: start: 200706, end: 201112
  2. NEURONTIN [Concomitant]
     Active Substance: GABAPENTIN
     Indication: Systemic lupus erythematosus
     Dates: start: 201106
  3. MONTELUKAST [Concomitant]
     Active Substance: MONTELUKAST SODIUM
     Indication: Multiple allergies
     Dates: start: 201104

REACTIONS (2)
  - Optic neuritis [Unknown]
  - Maculopathy [Unknown]

NARRATIVE: CASE EVENT DATE: 20210401
